FAERS Safety Report 22045372 (Version 1)
Quarter: 2023Q1

REPORT INFORMATION
  Report Type: Spontaneous
  Country: CN (occurrence: CN)
  Receive Date: 20230228
  Receipt Date: 20230228
  Transmission Date: 20230418
  Serious: Yes (Hospitalization)
  Sender: FDA-Public Use
  Company Number: CN-ORGANON-O2302CHN002560

PATIENT
  Age: 73 Year
  Sex: Male
  Weight: 49 kg

DRUGS (1)
  1. SINGULAIR [Suspect]
     Active Substance: MONTELUKAST SODIUM
     Indication: Asthma
     Dosage: 10MG, QD
     Route: 048
     Dates: start: 20230217, end: 20230217

REACTIONS (7)
  - Disorganised speech [Recovered/Resolved]
  - Pruritus [Recovered/Resolved]
  - Insomnia [Recovered/Resolved]
  - Flushing [Unknown]
  - Initial insomnia [Unknown]
  - Depressed mood [Unknown]
  - Dizziness [Unknown]

NARRATIVE: CASE EVENT DATE: 20230217
